FAERS Safety Report 23694916 (Version 1)
Quarter: 2024Q2

REPORT INFORMATION
  Report Type: Spontaneous
  Country: US (occurrence: US)
  Receive Date: 20240402
  Receipt Date: 20240402
  Transmission Date: 20240716
  Serious: Yes (Death, Other)
  Sender: FDA-Public Use
  Company Number: US-IHL-000517

PATIENT
  Age: 14 Year
  Sex: Male

DRUGS (4)
  1. FLUOXETINE HYDROCHLORIDE [Suspect]
     Active Substance: FLUOXETINE HYDROCHLORIDE
     Indication: Product used for unknown indication
     Route: 065
  2. DRONABINOL [Suspect]
     Active Substance: DRONABINOL
     Indication: Product used for unknown indication
     Route: 065
  3. ALCOHOL [Suspect]
     Active Substance: ALCOHOL
     Indication: Product used for unknown indication
     Route: 065
  4. DEXTROMETHORPHAN [Suspect]
     Active Substance: DEXTROMETHORPHAN
     Indication: Product used for unknown indication
     Route: 065

REACTIONS (9)
  - Homicide [Fatal]
  - Shared psychotic disorder [Fatal]
  - Sexual abuse [Fatal]
  - Compulsive sexual behaviour [Fatal]
  - Drug interaction [Fatal]
  - Drug level above therapeutic [Fatal]
  - Serotonin syndrome [Fatal]
  - Completed suicide [Fatal]
  - Drug abuse [Fatal]
